FAERS Safety Report 20145884 (Version 1)
Quarter: 2021Q4

REPORT INFORMATION
  Report Type: Report from Study
  Country: US (occurrence: None)
  Receive Date: 20211203
  Receipt Date: 20211203
  Transmission Date: 20220304
  Serious: Yes (Other)
  Sender: FDA-Public Use
  Company Number: 2021A849067

PATIENT
  Sex: Male

DRUGS (1)
  1. CALQUENCE [Suspect]
     Active Substance: ACALABRUTINIB
     Indication: Chronic lymphocytic leukaemia
     Route: 048
     Dates: start: 20210901

REACTIONS (7)
  - Fall [Unknown]
  - Rotator cuff syndrome [Unknown]
  - Scar [Unknown]
  - Skin mass [Unknown]
  - Peripheral swelling [Unknown]
  - Pyrexia [Unknown]
  - Drug ineffective [Unknown]
